FAERS Safety Report 10169167 (Version 1)
Quarter: 2014Q2

REPORT INFORMATION
  Report Type: Spontaneous
  Country: US (occurrence: US)
  Receive Date: 20140513
  Receipt Date: 20140513
  Transmission Date: 20141212
  Serious: Yes (Other)
  Sender: FDA-Public Use
  Company Number: US-SA-2014SA059528

PATIENT
  Age: 82 Year
  Sex: Female

DRUGS (2)
  1. PLAVIX [Suspect]
     Indication: PRODUCT USED FOR UNKNOWN INDICATION
     Route: 065
  2. THYROID THERAPY [Concomitant]

REACTIONS (4)
  - Cardiac pacemaker insertion [Unknown]
  - Nephrolithiasis [Unknown]
  - Goitre [Unknown]
  - Choking sensation [Unknown]
